FAERS Safety Report 9844985 (Version 1)
Quarter: 2014Q1

REPORT INFORMATION
  Report Type: Spontaneous
  Country: CH (occurrence: None)
  Receive Date: 20140122
  Receipt Date: 20140122
  Transmission Date: 20141002
  Serious: Yes (Death, Hospitalization)
  Sender: FDA-Public Use
  Company Number: UTC-043165

PATIENT
  Age: 60 Year
  Sex: Female

DRUGS (12)
  1. REMODULIN [Suspect]
     Indication: PRODUCT USED FOR UNKNOWN INDICATION
     Dates: start: 201310
  2. ALDACTONE (SPIRONOLACTONE) [Concomitant]
  3. OMEPRAZOLE (CAPSULE) [Concomitant]
  4. GLIVEC (IMATINIB) [Concomitant]
  5. MAGNESIOCARD GRAPEFRUIT (MAGNESIUM ASPARTATE HYDROCHLORIDE) [Concomitant]
  6. MARCOUMAR PHENPROCOUMON) [Concomitant]
  7. REMERON (MIRTAZAPINE) [Concomitant]
  8. TOREM (TORASEMIDE) [Concomitant]
  9. TRACLEER (BOSENTAN) [Concomitant]
  10. VIAGRA (SILDENAFIL) [Concomitant]
  11. OXYCONTIN (OXYCODONE HYDROCHLORIDE) [Concomitant]
  12. DAFALGAN (PARAXCETAMOL) [Concomitant]

REACTIONS (1)
  - Aortic dissection [None]
